FAERS Safety Report 21848071 (Version 8)
Quarter: 2024Q4

REPORT INFORMATION
  Report Type: Report from Study
  Country: US (occurrence: US)
  Receive Date: 20230111
  Receipt Date: 20241001
  Transmission Date: 20250114
  Serious: Yes (Hospitalization, Other)
  Sender: NOVARTIS
  Company Number: US-002147023-NVSC2023US005814

PATIENT
  Age: 61 Year
  Sex: Female

DRUGS (1)
  1. ENTRESTO [Suspect]
     Active Substance: SACUBITRIL\VALSARTAN
     Indication: Product used for unknown indication
     Dosage: 1 DOSAGE FORM, BID
     Route: 048
     Dates: start: 202107

REACTIONS (10)
  - Pain [Unknown]
  - Lupus-like syndrome [Unknown]
  - Gastrointestinal perforation [Unknown]
  - Cardiac dysfunction [Unknown]
  - Chest pain [Not Recovered/Not Resolved]
  - Lethargy [Unknown]
  - Discomfort [Unknown]
  - Dyspnoea [Unknown]
  - Gait disturbance [Unknown]
  - Cardiac disorder [Unknown]

NARRATIVE: CASE EVENT DATE: 20221201
